FAERS Safety Report 8924509 (Version 1)
Quarter: 2012Q4

REPORT INFORMATION
  Report Type: 
  Country: IT (occurrence: IT)
  Receive Date: 20121126
  Receipt Date: 20121126
  Transmission Date: 20130627
  Serious: Yes (Life-Threatening)
  Sender: FDA-Public Use
  Company Number: PHHY2012IT107021

PATIENT
  Sex: Male

DRUGS (1)
  1. TRAMADOL [Suspect]
     Indication: PAIN IN EXTREMITY
     Dosage: 100 mg, daily dose
     Route: 042
     Dates: start: 20121111, end: 20121111

REACTIONS (4)
  - Ventricular extrasystoles [Unknown]
  - Bronchospasm [Unknown]
  - Hypoxia [Unknown]
  - Shock [Unknown]
